FAERS Safety Report 25285370 (Version 4)
Quarter: 2025Q2

REPORT INFORMATION
  Report Type: Report from Study
  Country: US (occurrence: US)
  Receive Date: 20250509
  Receipt Date: 20250620
  Transmission Date: 20250716
  Serious: Yes (Death)
  Sender: ROCHE
  Company Number: US-ROCHE-10000278932

PATIENT
  Age: 32 Year
  Sex: Male

DRUGS (5)
  1. HEMLIBRA [Suspect]
     Active Substance: EMICIZUMAB-KXWH
     Indication: Factor VIII deficiency
     Dosage: INJECT 1.5ML (225MG) SUBCUTANEOUSLY EVERY 14 DAY(S) DRAW UP 0.7ML FROM (1) 105MG VIAL AND 0.8ML FROM
     Route: 058
  2. HEMLIBRA [Suspect]
     Active Substance: EMICIZUMAB-KXWH
     Dosage: INJECT 1.5ML (225MG) SUBCUTANEOUSLY EVERY 14 DAY(S) DRAW UP 0.7ML FROM (1) 105MG VIAL AND 0.8ML FROM
     Route: 058
  3. FEIBA [Concomitant]
     Active Substance: ANTI-INHIBITOR COAGULANT COMPLEX
  4. NOVOSEVEN [Concomitant]
     Active Substance: COAGULATION FACTOR VIIA RECOMBINANT HUMAN
  5. BYCLOT [Concomitant]
     Active Substance: COAGULATION FACTOR VII HUMAN\COAGULATION FACTOR X HUMAN

REACTIONS (1)
  - Death [Fatal]
